FAERS Safety Report 19001826 (Version 1)
Quarter: 2021Q1

REPORT INFORMATION
  Report Type: Spontaneous
  Country: US (occurrence: US)
  Receive Date: 20210312
  Receipt Date: 20210312
  Transmission Date: 20210420
  Serious: Yes (Hospitalization, Other)
  Sender: FDA-Public Use
  Company Number: US-ELI_LILLY_AND_COMPANY-US202103002231

PATIENT
  Sex: Male

DRUGS (2)
  1. HUMULIN R [Suspect]
     Active Substance: INSULIN HUMAN
     Dosage: UNK, UNKNOWN
     Route: 058
  2. HUMULIN R [Suspect]
     Active Substance: INSULIN HUMAN
     Indication: DIABETES MELLITUS
     Dosage: UNK, UNKNOWN
     Route: 058

REACTIONS (7)
  - Cataract [Recovering/Resolving]
  - Musculoskeletal disorder [Recovered/Resolved]
  - Blood glucose increased [Unknown]
  - Wrong technique in product usage process [Not Recovered/Not Resolved]
  - Drug resistance [Unknown]
  - Post procedural complication [Recovered/Resolved]
  - Drug ineffective [Unknown]
